FAERS Safety Report 14264172 (Version 1)
Quarter: 2017Q4

REPORT INFORMATION
  Report Type: Not Available
  Country: SN (occurrence: SN)
  Receive Date: 20171208
  Receipt Date: 20171208
  Transmission Date: 20180321
  Serious: Yes (Death)
  Sender: FDA-Public Use
  Company Number: SN-AKORN-74760

PATIENT
  Age: 45 Year
  Sex: Female

DRUGS (1)
  1. CLOBETASOL PROPIONATE CREAM [Suspect]
     Active Substance: CLOBETASOL PROPIONATE

REACTIONS (3)
  - Squamous cell carcinoma of skin [Fatal]
  - Lichenoid keratosis [Fatal]
  - Off label use [Fatal]
